FAERS Safety Report 7532232-8 (Version None)
Quarter: 2011Q2

REPORT INFORMATION
  Report Type: 
  Country: None (occurrence: None)
  Receive Date: 20110608
  Receipt Date: 20110525
  Transmission Date: 20111010
  Serious: Yes (Hospitalization)
  Sender: FDA-Public Use
  Company Number: PHHY2011PH45372

PATIENT
  Age: 22 Year
  Sex: Female

DRUGS (10)
  1. ISOPHANE INSULIN [Concomitant]
  2. SPIRONOLACTONE [Concomitant]
  3. HYDRALAZINE HCL [Suspect]
  4. TELMISARTAN [Concomitant]
  5. CALCIUM CARBONATE [Concomitant]
  6. KETOCONAZOLE [Concomitant]
  7. METOPROLOL [Concomitant]
  8. INSULIN GLULISINE [Concomitant]
  9. INSULIN GLARGINE [Concomitant]
  10. AMLODIPINE [Concomitant]

REACTIONS (9)
  - TRANSIENT PSYCHOSIS [None]
  - DRUG EXPOSURE DURING PREGNANCY [None]
  - PRE-ECLAMPSIA [None]
  - CUSHING'S SYNDROME [None]
  - GESTATIONAL DIABETES [None]
  - CONFUSIONAL STATE [None]
  - DRUG INEFFECTIVE [None]
  - PREMATURE LABOUR [None]
  - BLOOD PRESSURE INCREASED [None]
